FAERS Safety Report 19724703 (Version 1)
Quarter: 2021Q3

REPORT INFORMATION
  Report Type: Spontaneous
  Country: US (occurrence: US)
  Receive Date: 20210819
  Receipt Date: 20210819
  Transmission Date: 20211014
  Serious: No
  Sender: FDA-Public Use
  Company Number: US-ASTRAZENECA-2021A035526

PATIENT
  Sex: Male
  Weight: 95.3 kg

DRUGS (1)
  1. SYMBICORT [Suspect]
     Active Substance: BUDESONIDE\FORMOTEROL FUMARATE DIHYDRATE
     Indication: CHRONIC OBSTRUCTIVE PULMONARY DISEASE
     Dosage: 160/4.5/4.5MCG,2 PUFFS TWO TIMES A DAY
     Route: 055
     Dates: start: 2006

REACTIONS (3)
  - Lung disorder [Not Recovered/Not Resolved]
  - Hypoacusis [Unknown]
  - Dyspnoea [Unknown]
